FAERS Safety Report 25934802 (Version 1)
Quarter: 2025Q4

REPORT INFORMATION
  Report Type: Spontaneous
  Country: CO (occurrence: CO)
  Receive Date: 20251017
  Receipt Date: 20251017
  Transmission Date: 20260118
  Serious: Yes (Life-Threatening, Hospitalization, Other)
  Sender: RANBAXY
  Company Number: CO-SUN PHARMACEUTICAL INDUSTRIES INC-2025R1-532223

PATIENT
  Age: 21 Year
  Sex: Male
  Weight: 53 kg

DRUGS (3)
  1. CLONAZEPAM [Suspect]
     Active Substance: CLONAZEPAM
     Indication: Product used for unknown indication
     Dosage: UNK 35 BAGS EACH WITH 100 TABLETS; 2 MG
     Route: 065
  2. CANNABIS SATIVA SUBSP. INDICA TOP [Suspect]
     Active Substance: CANNABIS SATIVA SUBSP. INDICA TOP
     Indication: Product used for unknown indication
     Dosage: UNK 15 PACKAGES
     Route: 065
  3. COCAINE [Suspect]
     Active Substance: COCAINE
     Indication: Product used for unknown indication
     Dosage: UNK 10 BAGS
     Route: 065

REACTIONS (8)
  - Intentional overdose [Unknown]
  - Sinus bradycardia [Recovered/Resolved]
  - Hypotension [Recovered/Resolved]
  - Condition aggravated [Unknown]
  - Hypoglycaemia [Recovered/Resolved]
  - Cardiogenic shock [Recovered/Resolved]
  - Mydriasis [Unknown]
  - Toxicity to various agents [Recovered/Resolved]
